FAERS Safety Report 8699306 (Version 2)
Quarter: 2012Q4

REPORT INFORMATION
  Report Type: 
  Country: US (occurrence: US)
  Receive Date: 20120802
  Receipt Date: 20121107
  Transmission Date: 20130627
  Serious: No
  Sender: FDA-Public Use
  Company Number: US-ASTRAZENECA-2012SE51579

PATIENT
  Age: 64 Year
  Sex: Female
  Weight: 137 kg

DRUGS (1)
  1. CRESTOR [Suspect]
     Indication: DYSLIPIDAEMIA
     Route: 048
     Dates: start: 20120213, end: 20120518

REACTIONS (4)
  - Abasia [Unknown]
  - Oedema peripheral [Unknown]
  - Myalgia [Unknown]
  - Muscle spasms [Recovered/Resolved]
